FAERS Safety Report 24160448 (Version 1)
Quarter: 2024Q3

REPORT INFORMATION
  Report Type: Spontaneous
  Country: ES (occurrence: ES)
  Receive Date: 20240801
  Receipt Date: 20240801
  Transmission Date: 20241017
  Serious: Yes (Other)
  Sender: SANOFI AVENTIS
  Company Number: None

PATIENT
  Age: 51 Year
  Sex: Female

DRUGS (10)
  1. DUPIXENT [Suspect]
     Active Substance: DUPILUMAB
     Indication: Asthma
     Dosage: 300 MG, QOW
     Route: 058
     Dates: start: 20240116, end: 20240423
  2. MONTELUKAST SODIUM [Concomitant]
     Active Substance: MONTELUKAST SODIUM
     Dosage: 10 MG, 1X
     Route: 048
     Dates: start: 20190610
  3. CETIRIZINE HYDROCHLORIDE [Concomitant]
     Active Substance: CETIRIZINE HYDROCHLORIDE
     Dosage: 10 MG, QD
     Route: 048
     Dates: start: 20221014
  4. AMITRIPTYLINE HYDROCHLORIDE [Concomitant]
     Active Substance: AMITRIPTYLINE HYDROCHLORIDE
     Dosage: 10 MG, QD
     Route: 048
  5. LANSOPRAZOL CINFA [Concomitant]
     Dosage: 30 MG, BID
     Route: 048
  6. FLUTICASONE FUROATE [Concomitant]
     Active Substance: FLUTICASONE FUROATE
     Dosage: 27.5 UG, QD
     Route: 055
     Dates: start: 20210812
  7. DEXKETOPROFEN TROMETAMOL [Concomitant]
     Active Substance: DEXKETOPROFEN TROMETAMOL
     Dosage: 25 MG, TID
     Route: 048
     Dates: start: 20210916
  8. GREGAL [Concomitant]
     Dosage: 10 UG, QD
     Route: 055
     Dates: start: 20201116
  9. FLUTICASONE FUROATE\VILANTEROL TRIFENATATE [Concomitant]
     Active Substance: FLUTICASONE FUROATE\VILANTEROL TRIFENATATE
     Dosage: 1 DF, QD
     Route: 055
     Dates: start: 20230508
  10. TERBASMIN [TERBUTALINE] [Concomitant]
     Dosage: 500 UG, TID
     Route: 055
     Dates: start: 20210916

REACTIONS (3)
  - Eyelid oedema [Recovered/Resolved]
  - Lip oedema [Recovered/Resolved]
  - Pruritus [Recovered/Resolved]
